FAERS Safety Report 9295269 (Version 3)
Quarter: 2013Q3

REPORT INFORMATION
  Report Type: Spontaneous
  Country: JP (occurrence: JP)
  Receive Date: 20130517
  Receipt Date: 20130710
  Transmission Date: 20140515
  Serious: Yes (Hospitalization)
  Sender: FDA-Public Use
  Company Number: JP-AMGEN-JPNSP2013035084

PATIENT
  Age: 65 Year
  Sex: Male
  Weight: 68 kg

DRUGS (10)
  1. VECTIBIX [Suspect]
     Indication: COLON CANCER
     Dosage: 400 MG, Q2WK
     Route: 041
     Dates: start: 20110317, end: 20130411
  2. BLOPRESS [Concomitant]
     Indication: HYPERTENSION
     Dosage: 12 MG, UNK
     Route: 048
     Dates: start: 20110317
  3. TAKEPRON [Concomitant]
     Indication: GASTROOESOPHAGEAL REFLUX DISEASE
     Dosage: 15 MG, QD
     Route: 048
     Dates: start: 20110317
  4. IRINOTECAN HYDROCHLORIDE [Concomitant]
     Indication: COLON CANCER
     Dosage: UNK
     Route: 041
     Dates: start: 20090429, end: 20100518
  5. IRINOTECAN HYDROCHLORIDE [Concomitant]
     Dosage: 265 MG, Q2WK
     Route: 041
     Dates: start: 20110317, end: 20130411
  6. MIYA-BM [Concomitant]
     Indication: GASTROINTESTINAL DISORDER
     Dosage: 1 G, TID
     Route: 048
     Dates: start: 20110317
  7. MIYA-BM [Concomitant]
     Indication: DISBACTERIOSIS
  8. LENDORMIN DAINIPPO [Concomitant]
     Indication: INSOMNIA
     Dosage: 0.25 MG, QD
     Route: 048
     Dates: start: 20110317
  9. HERBESSER [Concomitant]
     Indication: HYPERTENSION
     Dosage: 30 MG, TID
     Route: 048
     Dates: start: 20110317
  10. HUMALOG MIX [Concomitant]
     Indication: DIABETES MELLITUS
     Dosage: 10 IU, BID
     Route: 058
     Dates: start: 20110317

REACTIONS (7)
  - Hypoglycaemia [Recovered/Resolved]
  - Road traffic accident [Recovered/Resolved]
  - Loss of consciousness [Recovered/Resolved]
  - Electrocardiogram QT prolonged [Unknown]
  - Fall [Recovered/Resolved]
  - Hypomagnesaemia [Not Recovered/Not Resolved]
  - Hypocalcaemia [Unknown]
